FAERS Safety Report 9039044 (Version 2)
Quarter: 2013Q2

REPORT INFORMATION
  Report Type: Spontaneous
  Country: US (occurrence: None)
  Receive Date: 20120525
  Receipt Date: 20120827
  Transmission Date: 20140414
  Serious: Yes (Other)
  Sender: FDA-Public Use
  Company Number: 347881

PATIENT
  Age: 74 Year
  Sex: Male
  Weight: 70.7 kg

DRUGS (14)
  1. VICTOZA [Suspect]
     Indication: TYPE 2 DIABETES MELLITUS
     Route: 058
     Dates: start: 20120214, end: 20120308
  2. MICARDIS (TELMISARTAN) [Concomitant]
  3. ZOCOR (SIMVASTATIN) [Concomitant]
  4. ALIGN (BIFIDOBACTERIUM INFANTIS) [Concomitant]
  5. HYDROCORTISONE (HYDROCORTISONE) [Concomitant]
  6. CLARINEX-D [Concomitant]
  7. ELESTAT (EPINASTINE HYDROCHLORIDE) [Concomitant]
  8. LOMOTIL (ATROPINE SULFATE, DIPHENOXYLATE HYDROCHLORIDE) [Concomitant]
  9. MYLANTA(ALUMINUM HYDROXIDE GEL, DRIED, MAGNESIUM HYDROXIDE, SIMETICONE) [Concomitant]
  10. ZADITOR (KETOTIFEN) [Concomitant]
  11. TIMOLOL (TIMOLOL) (NONE) [Concomitant]
  12. XALATAN (LATANOPROST) [Concomitant]
  13. CITRACAL (CALCIUM CITRATE) [Concomitant]
  14. FOLTX (CYANOCOBALAMIN, FOLIC ACID, PYRIDOXINE HYDROCHLORIDE) [Concomitant]

REACTIONS (1)
  - Pancreatitis [None]
